FAERS Safety Report 18729383 (Version 1)
Quarter: 2021Q1

REPORT INFORMATION
  Report Type: Spontaneous
  Country: US (occurrence: US)
  Receive Date: 20210111
  Receipt Date: 20210111
  Transmission Date: 20210419
  Serious: Yes (Death)
  Sender: FDA-Public Use
  Company Number: None

PATIENT
  Age: 40 Year
  Sex: Male
  Weight: 81.65 kg

DRUGS (9)
  1. XPOVIO [Suspect]
     Active Substance: SELINEXOR
     Indication: DIFFUSE LARGE B-CELL LYMPHOMA
     Dosage: ?          OTHER FREQUENCY:TWICE PER WEEK;?
     Route: 048
     Dates: start: 20210104, end: 20210111
  2. BARACLUDE [Concomitant]
     Active Substance: ENTECAVIR
  3. LORAZEPAM. [Concomitant]
     Active Substance: LORAZEPAM
  4. FIORICET [Concomitant]
     Active Substance: ACETAMINOPHEN\BUTALBITAL\CAFFEINE
  5. APREPITANT. [Concomitant]
     Active Substance: APREPITANT
  6. MORPHINE SULFATE ER BEADS [Concomitant]
  7. NALOXONE HCL [Concomitant]
     Active Substance: NALOXONE HYDROCHLORIDE
  8. OXYCODONE [Concomitant]
     Active Substance: OXYCODONE
  9. ONDANSETRON [Concomitant]
     Active Substance: ONDANSETRON

REACTIONS (1)
  - Death [None]

NARRATIVE: CASE EVENT DATE: 20210111
